FAERS Safety Report 8393200-X (Version None)
Quarter: 2012Q2

REPORT INFORMATION
  Report Type: 
  Country: None (occurrence: None)
  Receive Date: 20120529
  Receipt Date: 20120514
  Transmission Date: 20120825
  Serious: No
  Sender: FDA-Public Use
  Company Number: US-ABBOTT-12P-163-0935214-00

PATIENT
  Sex: Male

DRUGS (10)
  1. ALLOPURINOL [Concomitant]
     Indication: GOUT
  2. BENICAR HCT [Concomitant]
     Indication: HYPERTENSION
  3. BYETTA [Concomitant]
     Indication: DIABETES MELLITUS
  4. CYANOCOBALAMIN [Concomitant]
     Indication: SUPPLEMENTATION THERAPY
  5. NOVOLOG [Concomitant]
     Indication: DIABETES MELLITUS
  6. FUROSEMIDE [Concomitant]
     Indication: FLUID RETENTION
  7. CRESTOR [Concomitant]
     Indication: BLOOD CHOLESTEROL INCREASED
  8. LABETALOL HCL [Concomitant]
     Indication: HYPERTENSION
  9. ANDROGEL [Suspect]
     Indication: BLOOD TESTOSTERONE DECREASED
     Dosage: 2 PUMP PRESSES
     Route: 061
     Dates: start: 20120202
  10. LANTUS [Concomitant]
     Indication: DIABETES MELLITUS

REACTIONS (2)
  - DRUG INEFFECTIVE [None]
  - BLOOD TESTOSTERONE DECREASED [None]
